FAERS Safety Report 5861169-5 (Version None)
Quarter: 2008Q3

REPORT INFORMATION
  Report Type: 
  Country: None (occurrence: None)
  Receive Date: 20080827
  Receipt Date: 20080311
  Transmission Date: 20090109
  Serious: No
  Sender: FDA-Public Use
  Company Number: US-ABBOTT-08P-163-0441763-00

PATIENT
  Sex: Male
  Weight: 95.4 kg

DRUGS (6)
  1. COATED PDS [Suspect]
     Indication: DYSLIPIDAEMIA
     Dosage: ORANGE
     Route: 048
     Dates: start: 20080306, end: 20080306
  2. COATED PDS [Suspect]
     Indication: ANGIOPATHY
  3. T3 THYROID [Concomitant]
     Indication: HYPOTHYROIDISM
  4. T4 THYROID [Concomitant]
     Indication: HYPOTHYROIDISM
  5. TESTOSTERONE [Concomitant]
     Indication: HYPOGONADISM
     Dosage: TRANSDERMAL CREAM
     Route: 062
  6. DHEA [Concomitant]
     Indication: SUPPLEMENTATION THERAPY

REACTIONS (7)
  - BREAST DISCOLOURATION [None]
  - BREAST INDURATION [None]
  - BREAST SWELLING [None]
  - BREAST TENDERNESS [None]
  - ERYTHEMA [None]
  - FLUSHING [None]
  - PRURITUS [None]
